FAERS Safety Report 8812828 (Version 1)
Quarter: 2012Q4

REPORT INFORMATION
  Report Type: 
  Country: US (occurrence: US)
  Receive Date: 20120927
  Receipt Date: 20120927
  Transmission Date: 20130627
  Serious: No
  Sender: FDA-Public Use
  Company Number: US-AMGEN-USASP2012038995

PATIENT
  Sex: Female
  Weight: 63.31 kg

DRUGS (25)
  1. XGEVA [Suspect]
     Indication: BREAST CANCER METASTATIC
     Dosage: 120 mg, q4wk
     Route: 058
     Dates: start: 20110704, end: 20120706
  2. ARANESP [Concomitant]
     Indication: ANAEMIA
     Dosage: 300 mug, q2wk
     Route: 058
     Dates: start: 20100709
  3. CARBOPLAT [Concomitant]
  4. VINCRISTINE [Concomitant]
  5. VINORELBINE TARTRATE [Concomitant]
     Dosage: 40 mg, UNK
     Route: 042
  6. KYTRIL [Concomitant]
     Dosage: 1000 mug, UNK
     Route: 042
  7. CALTRATE WITH VITAMIN D [Concomitant]
     Dosage: 600 mg, bid
     Route: 048
  8. CLARITIN                           /00917501/ [Concomitant]
  9. COMPAZINE                          /00013304/ [Concomitant]
     Dosage: 10 mg, q6h
     Route: 048
  10. COUMADIN /00014802/ [Concomitant]
     Dosage: 5 mg, qd
     Route: 048
  11. EMLA                               /00675501/ [Concomitant]
     Dosage: 2.5 %, UNK
     Route: 061
  12. FLONASE [Concomitant]
     Dosage: 50 mug, qd
  13. LOVENOX [Concomitant]
     Dosage: 60 mg, bid
     Route: 058
  14. MULTIVITAMIN                       /00097801/ [Concomitant]
     Dosage: UNK UNK, qd
     Route: 048
  15. OXYCODONE HCL [Concomitant]
     Dosage: 5 mg, prn
     Route: 048
  16. PROAIR HFA [Concomitant]
  17. PROTONIX [Concomitant]
     Dosage: 40 mg, bid
     Route: 048
  18. SERTRALINE HCL [Concomitant]
     Dosage: 100 mg, bid
     Route: 048
  19. SIMPLY SLEEP [Concomitant]
     Route: 048
  20. SOMA [Concomitant]
     Dosage: 350 mg, prn
     Route: 048
  21. SUDAFED                            /00076302/ [Concomitant]
     Dosage: 30 mg, bid
     Route: 048
  22. TRAZODONE HCL [Concomitant]
     Dosage: 50 mg, tid
     Route: 048
  23. VITAMIN B12                        /00056201/ [Concomitant]
     Dosage: 1000 mug, bid
     Route: 048
  24. VITAMIN D                          /00318501/ [Concomitant]
     Dosage: 1000 IU, qd
     Route: 048
  25. XANAX [Concomitant]
     Dosage: 0.25 mg, tid
     Route: 048

REACTIONS (4)
  - Eye pain [Unknown]
  - Ocular hyperaemia [Unknown]
  - Bone pain [Unknown]
  - Rhinitis [Unknown]
